FAERS Safety Report 9422655 (Version 3)
Quarter: 2013Q4

REPORT INFORMATION
  Report Type: Spontaneous
  Country: US (occurrence: None)
  Receive Date: 20130724
  Receipt Date: 20131104
  Transmission Date: 20140711
  Serious: Yes (Other)
  Sender: FDA-Public Use
  Company Number: 2013P1012791

PATIENT
  Age: 28 Year
  Sex: Female

DRUGS (2)
  1. MYORISAN [Suspect]
     Dates: end: 20130701
  2. CELEXA [Concomitant]

REACTIONS (4)
  - Pregnancy [None]
  - Exposure during pregnancy [None]
  - Maternal exposure during pregnancy [None]
  - Abortion induced [None]
